FAERS Safety Report 25794623 (Version 2)
Quarter: 2025Q3

REPORT INFORMATION
  Report Type: Spontaneous
  Country: US (occurrence: US)
  Receive Date: 20250912
  Receipt Date: 20250919
  Transmission Date: 20251021
  Serious: Yes (Death)
  Sender: BIOVITRUM
  Company Number: US-BIOVITRUM-2025-US-011505

PATIENT
  Age: 66 Year
  Sex: Male

DRUGS (1)
  1. KINERET [Suspect]
     Active Substance: ANAKINRA
     Indication: Rheumatoid arthritis
     Route: 058
     Dates: end: 20250809

REACTIONS (7)
  - Rheumatoid arthritis [Not Recovered/Not Resolved]
  - Product distribution issue [Recovered/Resolved]
  - Product use issue [Unknown]
  - Product availability issue [Not Recovered/Not Resolved]
  - Product dose omission issue [Recovered/Resolved]
  - Decreased appetite [Fatal]
  - Post procedural complication [Fatal]

NARRATIVE: CASE EVENT DATE: 20250601
